FAERS Safety Report 8259081-X (Version None)
Quarter: 2012Q2

REPORT INFORMATION
  Report Type: 
  Country: None (occurrence: None)
  Receive Date: 20120404
  Receipt Date: 20120328
  Transmission Date: 20120825
  Serious: Yes (Other)
  Sender: FDA-Public Use
  Company Number: US-PFIZER INC-2012080818

PATIENT

DRUGS (4)
  1. NEURONTIN [Suspect]
     Dosage: 800 MG, 2 TABS PO QID
     Route: 048
  2. PERCOCET [Concomitant]
     Dosage: 10-325 MG
  3. XANAX [Concomitant]
     Dosage: 0.25 MG
  4. OXYCONTIN [Concomitant]
     Dosage: UNK

REACTIONS (4)
  - TOOTH FRACTURE [None]
  - TOOTH DISORDER [None]
  - DENTAL CARIES [None]
  - BONE DISORDER [None]
